FAERS Safety Report 11872912 (Version 6)
Quarter: 2019Q4

REPORT INFORMATION
  Report Type: Spontaneous
  Country: US (occurrence: US)
  Receive Date: 20151228
  Receipt Date: 20191226
  Transmission Date: 20200122
  Serious: No
  Sender: FDA-Public Use
  Company Number: US-PFIZER INC-2015457935

PATIENT
  Age: 45 Year
  Sex: Male

DRUGS (1)
  1. LYRICA [Suspect]
     Active Substance: PREGABALIN
     Indication: FIBROMYALGIA
     Dosage: 150 MG, 4X/DAY
     Route: 048

REACTIONS (9)
  - Off label use [Unknown]
  - Pain [Unknown]
  - Depression [Unknown]
  - Chills [Unknown]
  - Back pain [Unknown]
  - Gait disturbance [Unknown]
  - Withdrawal syndrome [Unknown]
  - Cold sweat [Unknown]
  - Insomnia [Unknown]
